FAERS Safety Report 9855801 (Version 1)
Quarter: 2014Q1

REPORT INFORMATION
  Report Type: Report from Study
  Country: US (occurrence: US)
  Receive Date: 20140130
  Receipt Date: 20140130
  Transmission Date: 20141002
  Serious: Yes (Other)
  Sender: FDA-Public Use
  Company Number: US-ROCHE-1318596

PATIENT
  Sex: Male

DRUGS (3)
  1. AVASTIN [Suspect]
     Indication: BRAIN NEOPLASM MALIGNANT
     Route: 042
     Dates: start: 20110209
  2. AVASTIN [Suspect]
     Indication: BRAIN NEOPLASM MALIGNANT
  3. KEPPRA [Concomitant]

REACTIONS (6)
  - Convulsion [Unknown]
  - Dry skin [Unknown]
  - Skin exfoliation [Unknown]
  - Gingival bleeding [Unknown]
  - Sleep apnoea syndrome [Unknown]
  - Disease progression [Unknown]
